FAERS Safety Report 10779767 (Version 2)
Quarter: 2015Q1

REPORT INFORMATION
  Report Type: Spontaneous
  Country: US (occurrence: US)
  Receive Date: 20150210
  Receipt Date: 20150327
  Transmission Date: 20150721
  Serious: Yes (Hospitalization)
  Sender: FDA-Public Use
  Company Number: US-BAYER-2015-019694

PATIENT
  Age: 24 Year
  Sex: Female
  Weight: 62.59 kg

DRUGS (4)
  1. MIRENA [Suspect]
     Active Substance: LEVONORGESTREL
     Indication: CONTRACEPTION
     Dosage: 20 MCG/24HR, CONT
     Route: 015
     Dates: start: 20110301, end: 20121012
  2. IBUPROFEN. [Concomitant]
     Active Substance: IBUPROFEN
     Indication: ASTHMA
  3. AZITHROMYCIN [Concomitant]
     Active Substance: AZITHROMYCIN ANHYDROUS
     Indication: ASTHMA
  4. SINGULAIR [Concomitant]
     Active Substance: MONTELUKAST SODIUM
     Indication: ASTHMA
     Dosage: UNK
     Dates: start: 1993

REACTIONS (13)
  - Uterine perforation [None]
  - Injury [None]
  - Depression [None]
  - Fear [None]
  - Internal injury [None]
  - Genital haemorrhage [None]
  - Pelvic pain [None]
  - Anxiety [None]
  - Abdominal pain [None]
  - Emotional distress [None]
  - Abdominal discomfort [None]
  - Off label use [None]
  - Depressed mood [None]

NARRATIVE: CASE EVENT DATE: 201210
